FAERS Safety Report 5065789-X (Version None)
Quarter: 2006Q3

REPORT INFORMATION
  Report Type: 
  Country: None (occurrence: None)
  Receive Date: 20060719
  Receipt Date: 20051230
  Transmission Date: 20061208
  Serious: Yes (Life-Threatening)
  Sender: FDA-Public Use
  Company Number: 06P-163-0320996-00

PATIENT
  Age: 49 Year
  Sex: Male

DRUGS (4)
  1. NORVIR [Suspect]
     Indication: HIV INFECTION
     Dosage: 200 MG, 2 CAPSULES, 2 IN 1 DAY, PER ORAL
     Route: 048
     Dates: end: 20051205
  2. APTIVUS [Suspect]
     Indication: HIV INFECTION
     Dosage: 500 MG, 2 CAPSULES, 2 IN 1 DAY, PER ORAL
     Route: 048
     Dates: end: 20051205
  3. TRUVADA [Concomitant]
  4. ENFUVIRTIDE [Concomitant]

REACTIONS (2)
  - ALANINE AMINOTRANSFERASE INCREASED [None]
  - ASPARTATE AMINOTRANSFERASE INCREASED [None]
